FAERS Safety Report 9491033 (Version 1)
Quarter: 2013Q3

REPORT INFORMATION
  Report Type: Spontaneous
  Country: US (occurrence: None)
  Receive Date: 20130829
  Receipt Date: 20130829
  Transmission Date: 20140515
  Serious: Yes (Other)
  Sender: FDA-Public Use
  Company Number: None

PATIENT
  Age: 95 Year
  Sex: Female
  Weight: 110 kg

DRUGS (19)
  1. LEVOTHYROXIN [Suspect]
     Indication: URINARY TRACT INFECTION
     Dosage: 1 PILL ONCE DAILY BY MOUTH
     Route: 048
     Dates: start: 20130812, end: 20130822
  2. SMZ-TMP DS [Suspect]
     Indication: BLOOD THYROID STIMULATING HORMONE DECREASED
     Dosage: 1 PILL TWICE DAILY BY MOUTH
     Route: 048
     Dates: start: 20130815, end: 20130816
  3. LABETALOL [Concomitant]
  4. ZANTAC [Concomitant]
  5. BORON [Concomitant]
  6. UBIQUINOL [Concomitant]
  7. DIGESTIVE ENZYMES [Concomitant]
  8. FLORISTOR [Concomitant]
  9. ALPHALIPOIC ACID [Concomitant]
  10. VITAMIN A [Concomitant]
  11. VITAMIN B COMP [Concomitant]
  12. VITAMIN C [Concomitant]
  13. VITAMIN D [Concomitant]
  14. CALCIUM [Concomitant]
  15. VIT K2 [Concomitant]
  16. CHROMIUM PICOLINATE [Concomitant]
  17. GINGER [Concomitant]
  18. TUMERIC ROOT [Concomitant]
  19. IODINE [Concomitant]

REACTIONS (2)
  - Diarrhoea [None]
  - Glossitis [None]
